APPROVED DRUG PRODUCT: LEVOFLOXACIN
Active Ingredient: LEVOFLOXACIN
Strength: 250MG
Dosage Form/Route: TABLET;ORAL
Application: A200839 | Product #001 | TE Code: AB
Applicant: MACLEODS PHARMACEUTICALS LTD
Approved: Mar 22, 2012 | RLD: No | RS: No | Type: RX